FAERS Safety Report 5825755-0 (Version None)
Quarter: 2008Q3

REPORT INFORMATION
  Report Type: 
  Country: None (occurrence: None)
  Receive Date: 20080729
  Receipt Date: 20080723
  Transmission Date: 20090109
  Serious: Yes (Hospitalization)
  Sender: FDA-Public Use
  Company Number: JP-MERCK-0807USA03149

PATIENT
  Age: 76 Year
  Sex: Female
  Weight: 56 kg

DRUGS (9)
  1. COZAAR [Suspect]
     Indication: HYPERTENSION
     Route: 048
     Dates: start: 20080605, end: 20080714
  2. AMLODIN [Concomitant]
     Indication: HYPERTENSION
     Route: 048
     Dates: start: 20060830
  3. FASTIC [Concomitant]
     Indication: DIABETES MELLITUS
     Route: 048
     Dates: start: 20080328
  4. PRAVASTATIN SODIUM [Concomitant]
     Indication: HYPERLIPIDAEMIA
     Route: 048
     Dates: start: 20070214
  5. FOSAMAX [Concomitant]
     Indication: OSTEOPOROSIS
     Route: 048
     Dates: start: 20070214
  6. PREDNISOLONE [Concomitant]
     Indication: PEMPHIGOID
     Route: 048
     Dates: start: 20060519, end: 20080704
  7. PREDNISOLONE [Concomitant]
     Route: 048
     Dates: start: 20080705
  8. PEPCID [Concomitant]
     Indication: PROPHYLAXIS
     Route: 048
     Dates: start: 20060519
  9. ALLELOCK [Concomitant]
     Indication: PEMPHIGOID
     Route: 048
     Dates: start: 20060509

REACTIONS (1)
  - PEMPHIGOID [None]
